FAERS Safety Report 11572969 (Version 3)
Quarter: 2015Q4

REPORT INFORMATION
  Report Type: Spontaneous
  Country: US (occurrence: US)
  Receive Date: 20150916
  Receipt Date: 20151104
  Transmission Date: 20160304
  Serious: No
  Sender: FDA-Public Use
  Company Number: US-ELI_LILLY_AND_COMPANY-US200910006006

PATIENT
  Sex: Female

DRUGS (5)
  1. FORTEO [Suspect]
     Active Substance: TERIPARATIDE
     Dosage: 20 UG, QD
  2. FORTEO [Suspect]
     Active Substance: TERIPARATIDE
     Dosage: 20 UG, DAILY (1/D)
     Dates: end: 201012
  3. FORTEO [Suspect]
     Active Substance: TERIPARATIDE
     Dosage: 20 UG, DAILY (1/D)
     Dates: start: 20110115
  4. FORTEO [Suspect]
     Active Substance: TERIPARATIDE
     Dosage: 20 UG, QD
     Dates: end: 20110816
  5. FORTEO [Suspect]
     Active Substance: TERIPARATIDE
     Indication: OSTEOPOROSIS
     Dosage: 20 UG, DAILY (1/D)
     Dates: start: 200908

REACTIONS (29)
  - Varicose vein [Unknown]
  - Toothache [Unknown]
  - Hypertension [Not Recovered/Not Resolved]
  - Arthralgia [Unknown]
  - Muscle spasms [Recovered/Resolved]
  - Cardiac discomfort [Not Recovered/Not Resolved]
  - Medial tibial stress syndrome [Unknown]
  - Malaise [Not Recovered/Not Resolved]
  - Pain in extremity [Unknown]
  - Gait disturbance [Unknown]
  - Stress [Not Recovered/Not Resolved]
  - Anxiety [Not Recovered/Not Resolved]
  - Feeling abnormal [Unknown]
  - Oral pain [Unknown]
  - Dental discomfort [Unknown]
  - Head discomfort [Unknown]
  - Irritability [Unknown]
  - Asthenia [Unknown]
  - Chest pain [Not Recovered/Not Resolved]
  - Muscle spasms [Unknown]
  - Intentional product misuse [Recovered/Resolved]
  - Intentional product misuse [Unknown]
  - Functional gastrointestinal disorder [Unknown]
  - Abdominal discomfort [Unknown]
  - Blood pressure increased [Unknown]
  - Tension [Unknown]
  - Fatigue [Unknown]
  - Insomnia [Unknown]
  - Skin disorder [Unknown]
